FAERS Safety Report 7268838-3 (Version None)
Quarter: 2011Q1

REPORT INFORMATION
  Report Type: 
  Country: None (occurrence: None)
  Receive Date: 20110201
  Receipt Date: 20110120
  Transmission Date: 20110831
  Serious: Yes (Other)
  Sender: FDA-Public Use
  Company Number: DE-PFIZER INC-2011020708

PATIENT
  Age: 76 Year
  Sex: Female

DRUGS (7)
  1. AMLODIPINE [Concomitant]
  2. METOHEXAL [Concomitant]
  3. AMIODARONE HCL [Suspect]
     Dosage: 200 MG DAILY
     Route: 048
     Dates: start: 20110101
  4. TORASEMIDE [Concomitant]
  5. ENALAPRIL MALEATE [Concomitant]
  6. MARCUMAR [Concomitant]
  7. SIMVASTATIN [Concomitant]

REACTIONS (2)
  - BLOOD CREATININE INCREASED [None]
  - LIVER FUNCTION TEST ABNORMAL [None]
